FAERS Safety Report 7032237-X (Version None)
Quarter: 2010Q4

REPORT INFORMATION
  Report Type: 
  Country: None (occurrence: None)
  Receive Date: 20101007
  Receipt Date: 20100331
  Transmission Date: 20110411
  Serious: Yes (Hospitalization)
  Sender: FDA-Public Use
  Company Number: US-BRISTOL-MYERS SQUIBB COMPANY-15044639

PATIENT
  Age: 55 Year
  Sex: Female
  Weight: 74 kg

DRUGS (9)
  1. BRIVANIB ALANINATE [Suspect]
     Indication: COLORECTAL CANCER METASTATIC
     Dosage: WEEKS:22 LAST DOSE PRIOR TO 31MAR10 IS 23MAR10
     Route: 048
     Dates: start: 20091104
  2. CETUXIMAB [Suspect]
     Indication: COLORECTAL CANCER METASTATIC
     Dosage: WEEKS:22,LAST DOSE PRIOR TO 31MAR10 IS 24MAR10
     Route: 042
     Dates: start: 20091104
  3. PLACEBO [Suspect]
     Indication: COLORECTAL CANCER METASTATIC
     Route: 048
     Dates: start: 20091104
  4. TELMISARTAN [Concomitant]
     Indication: HYPERTENSION
     Dates: start: 20080101
  5. OXYCONTIN [Concomitant]
     Indication: BACK PAIN
     Dates: start: 20091001
  6. ENDONE [Concomitant]
     Indication: BACK PAIN
     Dates: start: 20091201
  7. GASTRO-STOP [Concomitant]
     Indication: DIARRHOEA
     Dates: start: 20080101
  8. NEXIUM [Concomitant]
     Indication: GASTROOESOPHAGEAL REFLUX DISEASE
     Dates: start: 20050101
  9. TEMAZEPAM [Concomitant]
     Indication: SLEEP DISORDER
     Dates: start: 20070101

REACTIONS (1)
  - PRINZMETAL ANGINA [None]
